FAERS Safety Report 18925225 (Version 3)
Quarter: 2021Q1

REPORT INFORMATION
  Report Type: Spontaneous
  Country: CR (occurrence: CR)
  Receive Date: 20210223
  Receipt Date: 20210323
  Transmission Date: 20210420
  Serious: Yes (Death, Hospitalization, Other)
  Sender: FDA-Public Use
  Company Number: CR-ROCHE-2768742

PATIENT
  Sex: Male

DRUGS (1)
  1. OCREVUS [Suspect]
     Active Substance: OCRELIZUMAB
     Indication: TUMEFACTIVE MULTIPLE SCLEROSIS
     Dosage: DOSE AND FREQUENCY WERE NOT REPORTED
     Route: 042
     Dates: start: 202012

REACTIONS (5)
  - Pneumonia aspiration [Fatal]
  - Gastric disorder [Unknown]
  - Aspiration [Unknown]
  - Muscular weakness [Unknown]
  - Off label use [Unknown]

NARRATIVE: CASE EVENT DATE: 20210309
